FAERS Safety Report 5927959-5 (Version None)
Quarter: 2008Q4

REPORT INFORMATION
  Report Type: 
  Country: None (occurrence: None)
  Receive Date: 20081021
  Receipt Date: 20081006
  Transmission Date: 20090506
  Serious: Yes (Other)
  Sender: FDA-Public Use
  Company Number: ALA_00191_2008

PATIENT
  Age: 34 Year
  Sex: Female

DRUGS (2)
  1. OXYMETHOLONE [Suspect]
     Indication: DRUG USE FOR UNKNOWN INDICATION
     Dosage: (DF)
  2. PREDNISONE TAB [Suspect]
     Indication: DRUG USE FOR UNKNOWN INDICATION
     Dosage: (DF)

REACTIONS (8)
  - ADENOVIRUS INFECTION [None]
  - DIARRHOEA [None]
  - HEPATITIS [None]
  - INFECTION IN AN IMMUNOCOMPROMISED HOST [None]
  - PNEUMOCYSTIS JIROVECI INFECTION [None]
  - PNEUMONITIS [None]
  - POLLAKIURIA [None]
  - VOMITING [None]
